FAERS Safety Report 24665521 (Version 1)
Quarter: 2024Q4

REPORT INFORMATION
  Report Type: Spontaneous
  Country: NO (occurrence: NO)
  Receive Date: 20241126
  Receipt Date: 20241126
  Transmission Date: 20250115
  Serious: Yes (Other)
  Sender: FRESENIUS KABI
  Company Number: NO-BRISTOL-MYERS SQUIBB COMPANY-2024-173083

PATIENT
  Age: 56 Year
  Sex: Male

DRUGS (3)
  1. OXALIPLATIN [Suspect]
     Active Substance: OXALIPLATIN
     Indication: Product used for unknown indication
     Dosage: FORM OF ADMINISTRATION: UNKNOWN?ROUTE OF ADMINISTRATION: UNKNOWN
  2. NIVOLUMAB [Suspect]
     Active Substance: NIVOLUMAB
     Indication: Oesophageal squamous cell carcinoma
     Dosage: FOA: UNKNOWN?ROA: UNKNOWN
     Dates: start: 20231123
  3. SULFAMETHOXAZOLE\TRIMETHOPRIM [Concomitant]
     Active Substance: SULFAMETHOXAZOLE\TRIMETHOPRIM
     Indication: Prophylaxis
     Dosage: FOA: UNKNOWN?ROA: UNKNOWN

REACTIONS (6)
  - Malignant neoplasm progression [Unknown]
  - Immune-mediated cholangitis [Recovering/Resolving]
  - Neuropathy peripheral [Unknown]
  - Gamma-glutamyltransferase increased [Unknown]
  - Blood alkaline phosphatase increased [Unknown]
  - Lipase increased [Unknown]

NARRATIVE: CASE EVENT DATE: 20240101
